FAERS Safety Report 10301728 (Version 4)
Quarter: 2014Q4

REPORT INFORMATION
  Report Type: Spontaneous
  Country: US (occurrence: None)
  Receive Date: 20140709
  Receipt Date: 20141112
  Transmission Date: 20150528
  Serious: Yes (Hospitalization)
  Sender: FDA-Public Use
  Company Number: UNT-2014-003237

PATIENT
  Age: 69 Year
  Sex: Female
  Weight: 83.7 kg

DRUGS (2)
  1. WARFARIN (WARFARIN) [Concomitant]
     Active Substance: WARFARIN
  2. TYVASO [Suspect]
     Active Substance: TREPROSTINIL
     Indication: PULMONARY ARTERIAL HYPERTENSION
     Route: 055
     Dates: start: 20140614

REACTIONS (8)
  - Acute respiratory failure [None]
  - Pulmonary arterial hypertension [None]
  - Upper respiratory tract congestion [None]
  - Viral upper respiratory tract infection [None]
  - Chronic obstructive pulmonary disease [None]
  - Hypoxia [None]
  - Adverse event [None]
  - Bronchitis [None]

NARRATIVE: CASE EVENT DATE: 20140624
